FAERS Safety Report 8849599 (Version 1)
Quarter: 2012Q4

REPORT INFORMATION
  Report Type: Spontaneous
  Country: US (occurrence: None)
  Receive Date: 20121018
  Receipt Date: 20121018
  Transmission Date: 20130627
  Serious: Yes (Other)
  Sender: FDA-Public Use
  Company Number: None

PATIENT
  Age: 83 Year
  Sex: Female

DRUGS (2)
  1. LEVOFLOXACIN [Suspect]
     Indication: PNEUMONIA
     Route: 048
  2. LEVOTHYROXINE [Suspect]
     Indication: MEDICATION ERROR
     Route: 048
     Dates: start: 20120703, end: 20120718

REACTIONS (3)
  - Drug dispensing error [None]
  - Wrong drug administered [None]
  - Pneumonia [None]
